FAERS Safety Report 4913797-9 (Version None)
Quarter: 2006Q1

REPORT INFORMATION
  Report Type: 
  Country: None (occurrence: None)
  Receive Date: 20060216
  Receipt Date: 20060209
  Transmission Date: 20060701
  Serious: Yes (Hospitalization)
  Sender: FDA-Public Use
  Company Number: CH-GLAXOSMITHKLINE-B0411733A

PATIENT
  Age: 79 Year
  Sex: Female

DRUGS (7)
  1. AMOXICILLIN TRIHYDRATE [Suspect]
     Indication: DRUG USE FOR UNKNOWN INDICATION
     Route: 065
     Dates: start: 20051231, end: 20060101
  2. ROCEPHIN [Suspect]
     Indication: DRUG USE FOR UNKNOWN INDICATION
     Route: 051
     Dates: start: 20051231, end: 20060101
  3. VANCOCIN [Suspect]
     Indication: DRUG USE FOR UNKNOWN INDICATION
     Route: 051
     Dates: start: 20060101, end: 20060114
  4. BACTRIM [Suspect]
     Indication: DRUG USE FOR UNKNOWN INDICATION
     Route: 048
     Dates: end: 20060114
  5. NORVASC [Concomitant]
     Dosage: 10MG PER DAY
     Route: 048
  6. CO-RENITEN [Concomitant]
     Dosage: 1U PER DAY
     Route: 048
  7. EUTHYROX [Concomitant]
     Dosage: .1MG PER DAY
     Route: 048

REACTIONS (3)
  - BLOOD CREATININE INCREASED [None]
  - DERMATITIS EXFOLIATIVE [None]
  - RENAL IMPAIRMENT [None]
